FAERS Safety Report 6685379-2 (Version None)
Quarter: 2010Q2

REPORT INFORMATION
  Report Type: 
  Country: None (occurrence: None)
  Receive Date: 20100416
  Receipt Date: 20100120
  Transmission Date: 20101027
  Serious: No
  Sender: FDA-Public Use
  Company Number: US-AMGEN-KDL386895

PATIENT
  Sex: Male

DRUGS (15)
  1. SENSIPAR [Suspect]
     Indication: HYPERPARATHYROIDISM SECONDARY
  2. EPOGEN [Suspect]
     Indication: DIALYSIS
  3. HUMALOG [Concomitant]
  4. FUROSEMIDE [Concomitant]
  5. AMLODIPINE [Concomitant]
  6. DILTIAZEM HCL [Concomitant]
  7. DIOVAN [Concomitant]
  8. LIPITOR [Concomitant]
  9. NIASPAN [Concomitant]
  10. FLOMAX [Concomitant]
  11. SEVELAMER [Concomitant]
  12. FOSRENOL [Concomitant]
  13. ASPIRIN [Concomitant]
  14. ZEMPLAR [Concomitant]
  15. UNSPECIFIED NUTRITIONAL SUPPLEMENT [Concomitant]

REACTIONS (2)
  - BLOOD PARATHYROID HORMONE INCREASED [None]
  - PATELLA FRACTURE [None]
